FAERS Safety Report 9237946 (Version 1)
Quarter: 2013Q1

REPORT INFORMATION
  Report Type: Spontaneous
  Country: US (occurrence: None)
  Receive Date: 20121107
  Receipt Date: 20121107
  Transmission Date: 20140127
  Serious: No
  Sender: FDA-Public Use
  Company Number: 2012HGS-003763

PATIENT
  Age: 52 Year
  Sex: Female
  Weight: 76.07 kg

DRUGS (20)
  1. BENLYSTA [Suspect]
     Dosage: 1 IN 28 D, INTRAVENOUS DRIP
     Route: 041
     Dates: start: 20120601, end: 20120603
  2. OMEPRAZOLE(OMEPRAZOLE) (OMEPRAZOLE) [Concomitant]
  3. VOLTAREN TRANSDERMAL GEL(DICLOFENAC SODIUM) (DICLOFENAC SODIUM) [Concomitant]
  4. MAXALT(RIZATRIPTAN) (RIZATRIPTAN) [Concomitant]
  5. TOPIRAMATE(TOPIRAMATE) (TOPIRAMATE) [Concomitant]
  6. FLUCONAZOLE(FLUCONAZOLE) (FLUCONAZOLE) [Concomitant]
  7. CYCLOBENZAPRINE HCL(CYCLOBENZAPRINE HYDROCHLORIDE) (CYCLOBENZAPRINE HYDROCHLORIDE) [Concomitant]
  8. HYDROXYZINE HYDROCHLORIDE(HYDROXYZINE HYDROCHLORIDE) (HYDROXYZINE HYDROCHLORIDE) [Concomitant]
  9. ONDANSETRON HYDROCHLORIDE(ONDANSETRON HYDROCHLORIDE) (ONDANSETRON HYDROCHLORIDE) [Concomitant]
  10. OXYCONTIN(OXYCODONE HYDROCHLORIDE) (OXYCODONE HYDROCHLORIDE) [Concomitant]
  11. LORATADINE(LORATADINE) (LORATADINE) [Concomitant]
  12. FLUTICASONE PROPIONATE NASAL SPRAY(FLUTICASONE PROPIONATE) (FLUTICASONE PROPIONATE) [Concomitant]
  13. LYRICA(PREGABALIN) (PREGABALIN) [Concomitant]
  14. CLOBETASOL PROPIONATE(CLOBETASOL PROPIONATE) (CLOBETASOL PROPIONATE) [Concomitant]
  15. MYCOPHENOLATE MOFETIL(MYCOPHENOLATE MOFETIL) (MYCOPHENOLATE MOFETIL) [Concomitant]
  16. HYDROXYCHLOROQUINE SULFATE(HYDROXYCHLOROQUINE SULFATE) (HYDROXYCHLOROQUINE SULFATE) [Concomitant]
  17. OXYCODONE-ACETAMINOPHEN(OXYCOCET) (PARACETAMOL, OXYCODONE HYDROCHLORIDE) [Concomitant]
  18. METHOTREXATE(METHOTREXATE SODIUM) (METHOTREXATE SODIUM) [Concomitant]
  19. IMURAN(AZATHIOPRINE) (AZATHIOPRINE) [Concomitant]
  20. PLAQUENIL(HYDROXYCHLOROQUINE SULFATE) (HYDROXYCHLOROQUINE SULFATE) [Concomitant]

REACTIONS (12)
  - Infusion related reaction [None]
  - Chest discomfort [None]
  - Chest pain [None]
  - Dizziness [None]
  - Nausea [None]
  - Pyrexia [None]
  - Pain [None]
  - Viral upper respiratory tract infection [None]
  - Dyspnoea [None]
  - Haemoptysis [None]
  - Retching [None]
  - Cough [None]
